FAERS Safety Report 10164944 (Version 1)
Quarter: 2014Q2

REPORT INFORMATION
  Report Type: Spontaneous
  Country: US (occurrence: US)
  Receive Date: 20140510
  Receipt Date: 20140510
  Transmission Date: 20141212
  Serious: No
  Sender: FDA-Public Use
  Company Number: US-BRISTOL-MYERS SQUIBB COMPANY-19632157

PATIENT
  Age: 65 Year
  Sex: Female
  Weight: 88.43 kg

DRUGS (3)
  1. BYDUREON [Suspect]
     Indication: TYPE 2 DIABETES MELLITUS
     Dates: start: 20130921
  2. METFORMIN HCL [Suspect]
     Route: 048
  3. GLYBURIDE [Suspect]
     Route: 048

REACTIONS (3)
  - Injection site haemorrhage [Recovering/Resolving]
  - Injection site extravasation [Recovering/Resolving]
  - Blood glucose increased [Recovering/Resolving]
